FAERS Safety Report 8577066-0 (Version None)
Quarter: 2012Q3

REPORT INFORMATION
  Report Type: 
  Country: None (occurrence: None)
  Receive Date: 20120807
  Receipt Date: 20120724
  Transmission Date: 20120928
  Serious: Yes (Other)
  Sender: FDA-Public Use
  Company Number: JP-JHP PHARMACEUTICALS, LLC-JHP201200289

PATIENT
  Sex: Male
  Weight: 54 kg

DRUGS (11)
  1. FORSENID [Concomitant]
     Indication: CONSTIPATION
     Dosage: UNK
     Dates: start: 20100101
  2. DANTRIUM [Suspect]
     Indication: MUSCLE SPASMS
     Dosage: 25 MG, DAILY
     Route: 048
     Dates: start: 20120503, end: 20120524
  3. LASIX [Concomitant]
     Indication: RENAL FAILURE CHRONIC
     Dosage: UNK
     Dates: start: 20100101
  4. REMITCH [Concomitant]
     Indication: PRURITUS
     Dosage: UNK
     Dates: start: 20120227
  5. WARFARIN POTASSIUM [Concomitant]
     Indication: ATRIAL FIBRILLATION
     Dosage: UNK
     Dates: start: 20100101
  6. NEXIUM [Concomitant]
     Indication: GASTROOESOPHAGEAL REFLUX DISEASE
     Dosage: UNK
     Dates: start: 20111124
  7. ALLEGRA [Concomitant]
     Indication: PRURITUS
     Dosage: UNK
     Dates: start: 20110811
  8. ALLOPURINOL [Concomitant]
     Indication: RENAL FAILURE CHRONIC
     Dosage: UNK
     Dates: start: 20100101
  9. ALFAROL [Concomitant]
     Indication: RENAL FAILURE CHRONIC
     Dosage: UNK
     Dates: start: 20110419
  10. NESPO [Concomitant]
     Indication: NEPHROGENIC ANAEMIA
     Dosage: UNK
     Dates: start: 20110804
  11. SORBITOL 50PC INJ [Concomitant]
     Indication: CONSTIPATION
     Dosage: UNK
     Route: 048
     Dates: start: 20111003

REACTIONS (2)
  - BRADYCARDIA [None]
  - BLOOD CREATININE INCREASED [None]
